FAERS Safety Report 5034967-8 (Version None)
Quarter: 2006Q2

REPORT INFORMATION
  Report Type: 
  Country: None (occurrence: None)
  Receive Date: 20060622
  Receipt Date: 20060607
  Transmission Date: 20061013
  Serious: Yes (Hospitalization)
  Sender: FDA-Public Use
  Company Number: L06-FRA-02355-04

PATIENT
  Age: 28 Year
  Sex: Male

DRUGS (3)
  1. CARBAMAZEPINE [Suspect]
     Indication: MYOCLONUS
     Dosage: 1200 MG DAILY
  2. VIGABATRIN [Suspect]
     Indication: MYOCLONUS
     Dosage: 2000 MG DAILY
  3. PHENOBARBITAL TAB [Concomitant]

REACTIONS (4)
  - BALTIC MYOCLONIC EPILEPSY [None]
  - CONDITION AGGRAVATED [None]
  - GRAND MAL CONVULSION [None]
  - STATUS EPILEPTICUS [None]
